FAERS Safety Report 14179430 (Version 2)
Quarter: 2018Q1

REPORT INFORMATION
  Report Type: Spontaneous
  Country: US (occurrence: US)
  Receive Date: 20171110
  Receipt Date: 20180111
  Transmission Date: 20180508
  Serious: Yes (Hospitalization, Other)
  Sender: FDA-Public Use
  Company Number: US-SAOL THERAPEUTICS-0700953809

PATIENT
  Sex: Male

DRUGS (7)
  1. BACLOFEN. [Suspect]
     Active Substance: BACLOFEN
     Route: 048
  2. LIORESAL [Suspect]
     Active Substance: BACLOFEN
     Indication: MUSCLE SPASTICITY
  3. TYLENOL [Suspect]
     Active Substance: ACETAMINOPHEN
  4. LIORESAL [Suspect]
     Active Substance: BACLOFEN
     Indication: MUSCLE SPASTICITY
  5. LIORESAL [Suspect]
     Active Substance: BACLOFEN
     Indication: SPINAL CORD INJURY
     Dosage: UNK
  6. LYRICA [Suspect]
     Active Substance: PREGABALIN
  7. LIORESAL [Suspect]
     Active Substance: BACLOFEN
     Indication: SPINAL CORD INJURY
     Dosage: 159 ?G, \DAY
     Route: 037

REACTIONS (12)
  - Asthenia [Recovered/Resolved]
  - Gait disturbance [Recovered/Resolved]
  - Therapeutic response decreased [Recovered/Resolved]
  - Malaise [Recovered/Resolved]
  - Dizziness [Recovered/Resolved]
  - Pain in extremity [Recovered/Resolved]
  - Post lumbar puncture syndrome [Recovered/Resolved]
  - Urinary tract infection [Recovered/Resolved]
  - Medical device site erosion [Recovered/Resolved]
  - Clostridium difficile infection [Recovered/Resolved]
  - Muscle spasticity [Recovered/Resolved]
  - Fatigue [Recovered/Resolved]
